FAERS Safety Report 4619536-3 (Version None)
Quarter: 2005Q1

REPORT INFORMATION
  Report Type: 
  Country: None (occurrence: None)
  Receive Date: 20050324
  Receipt Date: 20050310
  Transmission Date: 20050727
  Serious: Yes (Hospitalization)
  Sender: FDA-Public Use
  Company Number: 2003IM001255

PATIENT
  Age: 59 Year
  Sex: Female
  Weight: 93.2 kg

DRUGS (10)
  1. INTERFERON GAMMA-1B [Suspect]
     Indication: OVARIAN CANCER
     Dosage: 100 UG, TIW, SUBCUTANEOUS
     Route: 058
     Dates: start: 20030826, end: 20030905
  2. CARBOPLATIN [Suspect]
     Indication: OVARIAN CANCER
     Dosage: 660 MG, Q3W, INTRAVENOUS
     Route: 042
     Dates: start: 20030826
  3. PACLITAXEL [Suspect]
     Indication: OVARIAN CANCER
     Dosage: 280 MG, Q3W, INTRAVENOUS
     Route: 042
     Dates: start: 20030826
  4. PERCOCET [Concomitant]
  5. COLACE [Concomitant]
  6. LOTREL [Concomitant]
  7. NEXIUM [Concomitant]
  8. MAXZIDE [Concomitant]
  9. PROZAC [Concomitant]
  10. REGLAN [Concomitant]

REACTIONS (1)
  - STAPHYLOCOCCAL BACTERAEMIA [None]
